FAERS Safety Report 9522478 (Version 1)
Quarter: 2013Q3

REPORT INFORMATION
  Report Type: Spontaneous
  Country: FR (occurrence: FR)
  Receive Date: 20130913
  Receipt Date: 20130913
  Transmission Date: 20140515
  Serious: Yes (Death)
  Sender: FDA-Public Use
  Company Number: FR-ASTRAZENECA-2013SE68614

PATIENT
  Age: 1003 Month
  Sex: Female

DRUGS (10)
  1. MOPRAL [Suspect]
     Route: 048
     Dates: end: 20130806
  2. METHOTREXATE [Suspect]
     Dates: end: 20130801
  3. CORTANCYL [Suspect]
     Route: 048
  4. INORIAL [Suspect]
     Route: 048
     Dates: end: 20130806
  5. INEGY [Suspect]
     Dosage: 10 MG /40 MG, 1 DF EVERY DAY
     Route: 048
  6. FORTZAAR [Suspect]
     Dosage: 100 MG / 12.5 MG, 1 DF EVERY DAY
     Route: 048
  7. PREVISCAN [Suspect]
     Dosage: 10 MG QD OR 15 MG QD EVERY OTHER DAY
     Route: 048
     Dates: end: 20130806
  8. CORTICOIDS [Concomitant]
     Indication: COUGH
     Route: 048
  9. CORTICOIDS [Concomitant]
     Indication: ASTHMA
     Route: 048
  10. BRONCHO-DILATATORS [Concomitant]
     Indication: ASTHMA

REACTIONS (1)
  - Interstitial lung disease [Fatal]
